FAERS Safety Report 5816269-2 (Version None)
Quarter: 2008Q3

REPORT INFORMATION
  Report Type: 
  Country: None (occurrence: None)
  Receive Date: 20080721
  Receipt Date: 20080715
  Transmission Date: 20090109
  Serious: Yes (Other)
  Sender: FDA-Public Use
  Company Number: FR-BRISTOL-MYERS SQUIBB COMPANY-14267900

PATIENT
  Age: 74 Year
  Sex: Female

DRUGS (2)
  1. ERBITUX [Suspect]
     Indication: TONSIL CANCER
     Dosage: THERAPY DATES: 25FEB08,04MAR08,10MAR08,17MAR08,25MAR08,31MAR08,24APR08.
     Route: 042
     Dates: start: 20080225, end: 20080424
  2. RADIOTHERAPY [Concomitant]
     Indication: TONSIL CANCER
     Dosage: 1 DOSAGE FORM= 50+16 GRAY.

REACTIONS (1)
  - SQUAMOUS CELL CARCINOMA [None]
